FAERS Safety Report 9658724 (Version 2)
Quarter: 2013Q4

REPORT INFORMATION
  Report Type: Spontaneous
  Country: US (occurrence: US)
  Receive Date: 20131030
  Receipt Date: 20131030
  Transmission Date: 20140711
  Serious: Yes (Hospitalization, Other)
  Sender: FDA-Public Use
  Company Number: US-NAPPMUNDI-USA-2011-0075966

PATIENT
  Age: 64 Year
  Sex: Female

DRUGS (4)
  1. OXYCONTIN (NDA 22-272) [Suspect]
     Indication: DRUG ABUSE
     Dosage: 40 MG, Q12H
     Route: 048
     Dates: start: 20100112, end: 20111008
  2. OXYCONTIN (NDA 22-272) [Suspect]
     Indication: ARTHRALGIA
  3. NORCO [Suspect]
     Indication: ARTHRALGIA
     Dosage: 1 TABLET, TID
     Route: 048
     Dates: start: 2010
  4. LORAZEPAM [Suspect]
     Indication: ANXIETY
     Dosage: 1 MG, DAILY
     Route: 048
     Dates: start: 2010, end: 201111

REACTIONS (2)
  - Overdose [Recovered/Resolved]
  - Drug abuse [Recovered/Resolved]
